FAERS Safety Report 25907241 (Version 1)
Quarter: 2025Q4

REPORT INFORMATION
  Report Type: Spontaneous
  Country: CN (occurrence: CN)
  Receive Date: 20251010
  Receipt Date: 20251010
  Transmission Date: 20260118
  Serious: Yes (Other)
  Sender: NOVO NORDISK
  Company Number: CN-NOVOPROD-1533739

PATIENT
  Age: 69 Year
  Sex: Female

DRUGS (2)
  1. NOVOLIN R [Suspect]
     Active Substance: INSULIN HUMAN
     Indication: Type 2 diabetes mellitus
     Dosage: UNK
     Dates: start: 2008
  2. INSULIN LISPRO [Concomitant]
     Active Substance: INSULIN LISPRO
     Indication: Type 2 diabetes mellitus
     Dosage: UNK

REACTIONS (4)
  - Benign neoplasm of thyroid gland [Unknown]
  - Diabetes mellitus inadequate control [Unknown]
  - Thyroid mass [Unknown]
  - Weight increased [Unknown]

NARRATIVE: CASE EVENT DATE: 20120101
